FAERS Safety Report 5819342-8 (Version None)
Quarter: 2008Q3

REPORT INFORMATION
  Report Type: 
  Country: None (occurrence: None)
  Receive Date: 20080723
  Receipt Date: 20080709
  Transmission Date: 20090109
  Serious: Yes (Life-Threatening)
  Sender: FDA-Public Use
  Company Number: FR-ASTRAZENECA-2006CG01185

PATIENT
  Age: 1 Hour
  Sex: Female
  Weight: 2.8 kg

DRUGS (1)
  1. LIDOCAINE [Suspect]
     Indication: LOCAL ANAESTHESIA
     Route: 064
     Dates: start: 20060422, end: 20060422

REACTIONS (5)
  - APNOEA [None]
  - CYANOSIS [None]
  - GRAND MAL CONVULSION [None]
  - HYPOTONIA [None]
  - MYDRIASIS [None]
